FAERS Safety Report 15396892 (Version 1)
Quarter: 2018Q3

REPORT INFORMATION
  Report Type: Spontaneous
  Country: US (occurrence: US)
  Receive Date: 20180918
  Receipt Date: 20180918
  Transmission Date: 20181010
  Serious: No
  Sender: FDA-Public Use
  Company Number: US-BAYER-2018-170483

PATIENT
  Age: 66 Year
  Sex: Female
  Weight: 63.49 kg

DRUGS (1)
  1. ZEGERID OTC CAPSULES [Suspect]
     Active Substance: OMEPRAZOLE\SODIUM BICARBONATE
     Indication: HIATUS HERNIA
     Dosage: 1 DF, QD
     Route: 048

REACTIONS (4)
  - Product use issue [Unknown]
  - Off label use [None]
  - Product use in unapproved indication [None]
  - Product prescribing issue [Unknown]
